FAERS Safety Report 4954731-5 (Version None)
Quarter: 2006Q1

REPORT INFORMATION
  Report Type: 
  Country: None (occurrence: None)
  Receive Date: 20060322
  Receipt Date: 20060109
  Transmission Date: 20060701
  Serious: Yes (Death, Hospitalization)
  Sender: FDA-Public Use
  Company Number: 2005163246

PATIENT
  Age: 41 Year
  Sex: Male
  Weight: 77.3 kg

DRUGS (28)
  1. SUTENT [Suspect]
     Indication: GASTROINTESTINAL STROMAL TUMOUR
     Dosage: 50 MG (25 MG, 2 IN 1 D), ORAL
     Route: 048
     Dates: start: 20050726, end: 20051113
  2. SPIRONOLACTONE [Suspect]
     Indication: DIURETIC THERAPY
     Dosage: 1 IN 1 D
     Dates: start: 20040401
  3. FUROSEMIDE [Suspect]
     Indication: DIURETIC THERAPY
     Dosage: 1 IN 1 D
     Dates: start: 20040401
  4. COUMADIN [Concomitant]
  5. ATIVAN [Concomitant]
  6. IRON [Concomitant]
  7. RABEPRAZOLE SODIUM [Concomitant]
  8. ACETAMINOPHEN [Concomitant]
  9. MORPHINE [Concomitant]
  10. RITALIN [Concomitant]
  11. CITALOPRAM [Concomitant]
  12. FUROSEMIDE INTENSOL [Concomitant]
  13. MAGNESIUM [Concomitant]
  14. OXAZEPAM [Concomitant]
  15. DULCOLAX [Concomitant]
  16. ENOXAPARIN SODIUM [Concomitant]
  17. METHOTRIMEPRAZINE (LEVOMEPROMAZINE) [Concomitant]
  18. LEVOTHYROXINE SODIUM [Concomitant]
  19. METHYLPHENIDATE HCL [Concomitant]
  20. DIMENHYDRINATE [Concomitant]
  21. SENNOSIDES (SENOSIDE A+B) [Concomitant]
  22. SPIRONOLACTONE [Concomitant]
  23. LEVOTHYROXINE SODIUM [Concomitant]
  24. NOZINAN (LEVOMEPROMAZINE) [Concomitant]
  25. PANTOPRAZOLE SODIUM [Concomitant]
  26. FERROUS SULFATE TAB [Concomitant]
  27. GRAVOL TAB [Concomitant]
  28. CELEXA [Concomitant]

REACTIONS (15)
  - ABDOMINAL PAIN [None]
  - ANAEMIA [None]
  - ASCITES [None]
  - BLOOD ALBUMIN DECREASED [None]
  - CATHETER RELATED COMPLICATION [None]
  - CONSTIPATION [None]
  - DEPRESSION [None]
  - DISEASE PROGRESSION [None]
  - FATIGUE [None]
  - HYPONATRAEMIA [None]
  - MUSCLE SPASMS [None]
  - NEOPLASM [None]
  - OEDEMA PERIPHERAL [None]
  - PAIN [None]
  - PULMONARY OEDEMA [None]
